FAERS Safety Report 12120302 (Version 2)
Quarter: 2016Q1

REPORT INFORMATION
  Report Type: Spontaneous
  Country: FR (occurrence: FR)
  Receive Date: 20160226
  Receipt Date: 20160317
  Transmission Date: 20160526
  Serious: Yes (Life-Threatening, Hospitalization)
  Sender: FDA-Public Use
  Company Number: FR-INDIVIOR LIMITED-INDV-088240-2016

PATIENT
  Age: 49 Year
  Sex: Male

DRUGS (4)
  1. PROFENID [Suspect]
     Active Substance: KETOPROFEN
     Indication: PRODUCT USED FOR UNKNOWN INDICATION
     Dosage: 100MG (1 VIAL) PER 24 HOURS
     Route: 042
     Dates: start: 20160125, end: 20160125
  2. DROLEPTAN [Suspect]
     Active Substance: DROPERIDOL
     Indication: PRODUCT USED FOR UNKNOWN INDICATION
     Dosage: 1.25 MG/2.5 ML, 1 VIAL TO COMPLETE UNTIL 48 ML
     Route: 042
     Dates: start: 20160125, end: 20160125
  3. TRACRIUM [Suspect]
     Active Substance: ATRACURIUM BESYLATE
     Indication: PRODUCT USED FOR UNKNOWN INDICATION
     Dosage: 20 MG, ONCE
     Route: 042
     Dates: start: 20160125, end: 20160125
  4. TEMGESIC [Suspect]
     Active Substance: BUPRENORPHINE HYDROCHLORIDE
     Indication: PRODUCT USED FOR UNKNOWN INDICATION
     Dosage: 1 VIAL OF 10 MG
     Route: 042
     Dates: start: 20160125, end: 20160125

REACTIONS (3)
  - Respiratory arrest [Unknown]
  - Respiratory symptom [Unknown]
  - Bradycardia [Unknown]

NARRATIVE: CASE EVENT DATE: 20160125
